FAERS Safety Report 15739443 (Version 1)
Quarter: 2018Q4

REPORT INFORMATION
  Report Type: Spontaneous
  Country: US (occurrence: US)
  Receive Date: 20181219
  Receipt Date: 20181219
  Transmission Date: 20190205
  Serious: No
  Sender: FDA-Public Use
  Company Number: US-ALLERGAN-1773550US

PATIENT
  Age: 86 Year
  Sex: Female

DRUGS (2)
  1. BYSTOLIC [Suspect]
     Active Substance: NEBIVOLOL HYDROCHLORIDE
     Indication: CARDIAC DISORDER
     Dosage: 5 MG, QD
     Route: 048
     Dates: start: 201712, end: 201712
  2. BYSTOLIC [Suspect]
     Active Substance: NEBIVOLOL HYDROCHLORIDE
     Dosage: 5 MG, QD
     Route: 048
     Dates: start: 201712

REACTIONS (5)
  - Malaise [Recovered/Resolved]
  - Somnolence [Recovered/Resolved]
  - Blood pressure increased [Recovered/Resolved]
  - Pain in extremity [Recovered/Resolved]
  - Headache [Recovered/Resolved]

NARRATIVE: CASE EVENT DATE: 201712
